FAERS Safety Report 23085417 (Version 1)
Quarter: 2023Q4

REPORT INFORMATION
  Report Type: Spontaneous
  Country: KR (occurrence: KR)
  Receive Date: 20231019
  Receipt Date: 20231019
  Transmission Date: 20240110
  Serious: Yes (Death, Other)
  Sender: FDA-Public Use
  Company Number: KR-PFIZER INC-202300330533

PATIENT

DRUGS (1)
  1. LORLATINIB [Suspect]
     Active Substance: LORLATINIB
     Route: 048

REACTIONS (1)
  - Completed suicide [Fatal]
